FAERS Safety Report 21531250 (Version 1)
Quarter: 2022Q4

REPORT INFORMATION
  Report Type: Spontaneous
  Country: US (occurrence: None)
  Receive Date: 20221028
  Receipt Date: 20221028
  Transmission Date: 20230113
  Serious: No
  Sender: FDA-Public Use
  Company Number: None

PATIENT
  Age: 90 Year
  Sex: Male
  Weight: 74 kg

DRUGS (1)
  1. HEPARIN SODIUM [Suspect]
     Active Substance: HEPARIN SODIUM
     Route: 042
     Dates: start: 20220709, end: 20220716

REACTIONS (5)
  - COVID-19 [None]
  - Blood loss anaemia [None]
  - Haematoma muscle [None]
  - Retroperitoneal haematoma [None]
  - Prothrombin time prolonged [None]

NARRATIVE: CASE EVENT DATE: 20220716
